FAERS Safety Report 4436034-0 (Version None)
Quarter: 2004Q3

REPORT INFORMATION
  Report Type: 
  Country: None (occurrence: None)
  Receive Date: 20040826
  Receipt Date: 20040819
  Transmission Date: 20050211
  Serious: Yes (Death)
  Sender: FDA-Public Use
  Company Number: 163-20785-04080388

PATIENT
  Age: 58 Year
  Sex: Male

DRUGS (1)
  1. THALOMID [Suspect]
     Indication: COMPLICATIONS OF BONE MARROW TRANSPLANT
     Dosage: 100 MG, DAILY, ORAL
     Route: 048
     Dates: start: 20030613, end: 20040101

REACTIONS (1)
  - RESPIRATORY ARREST [None]
